FAERS Safety Report 7456776-2 (Version None)
Quarter: 2011Q2

REPORT INFORMATION
  Report Type: 
  Country: None (occurrence: None)
  Receive Date: 20110504
  Receipt Date: 20110425
  Transmission Date: 20111010
  Serious: Yes (Other)
  Sender: FDA-Public Use
  Company Number: US-BIOGENIDEC-2010BI022382

PATIENT
  Age: 61 Year
  Sex: Female
  Weight: 74 kg

DRUGS (5)
  1. TYSABRI [Suspect]
     Indication: MULTIPLE SCLEROSIS
     Route: 042
     Dates: start: 20050107, end: 20050225
  2. CELEXA [Concomitant]
  3. TYSABRI [Suspect]
     Route: 042
     Dates: start: 20070111
  4. THYROID TAB [Concomitant]
     Indication: HYPOTHYROIDISM
     Dates: start: 19900101
  5. VITAMIN D [Concomitant]
     Indication: VITAMIN D DEFICIENCY

REACTIONS (14)
  - MEMORY IMPAIRMENT [None]
  - HEADACHE [None]
  - DYSPHAGIA [None]
  - PARATHYROID TUMOUR BENIGN [None]
  - BREAST CANCER STAGE I [None]
  - OEDEMA PERIPHERAL [None]
  - VISUAL IMPAIRMENT [None]
  - DERMATITIS [None]
  - LOCAL SWELLING [None]
  - PAIN IN EXTREMITY [None]
  - DIZZINESS [None]
  - CONSTIPATION [None]
  - SINUSITIS [None]
  - TOOTH DISORDER [None]
